FAERS Safety Report 17056786 (Version 3)
Quarter: 2020Q1

REPORT INFORMATION
  Report Type: Spontaneous
  Country: GB (occurrence: GB)
  Receive Date: 20191121
  Receipt Date: 20200306
  Transmission Date: 20200409
  Serious: Yes (Other)
  Sender: FDA-Public Use
  Company Number: GB-AUROBINDO-AUR-APL-2019-074291

PATIENT
  Age: 10 Year
  Sex: Female
  Weight: 35 kg

DRUGS (6)
  1. CALPOL [Concomitant]
     Active Substance: ACETAMINOPHEN
     Indication: HEADACHE
     Dosage: UNK
     Route: 065
     Dates: start: 20190427
  2. IBUPROFEN. [Suspect]
     Active Substance: IBUPROFEN
     Indication: VIRAL INFECTION
     Dosage: 900 MILLIGRAM, ONCE A DAY
     Route: 048
     Dates: start: 20190428, end: 20190501
  3. BECLOMETASONE [Concomitant]
     Active Substance: BECLOMETHASONE DIPROPIONATE
     Dosage: 4 DOSAGE FORM, ONCE A DAY (PUFF IN NOSTRILS )
     Route: 065
     Dates: start: 20190429
  4. BECLOMETASONE [Concomitant]
     Active Substance: BECLOMETHASONE DIPROPIONATE
     Indication: HEADACHE
     Dosage: UNK
     Route: 065
  5. PROCHLORPERAZINE. [Concomitant]
     Active Substance: PROCHLORPERAZINE
     Dosage: 6 MILLIGRAM, ONCE A DAY (AS NEEDED. 10 TABLETS )
     Route: 065
     Dates: start: 20190427
  6. PROCHLORPERAZINE. [Concomitant]
     Active Substance: PROCHLORPERAZINE
     Indication: DIZZINESS
     Dosage: UNK
     Route: 065

REACTIONS (3)
  - Upper gastrointestinal haemorrhage [Recovering/Resolving]
  - Anaemia [Recovered/Resolved]
  - Duodenal ulcer [Recovered/Resolved]

NARRATIVE: CASE EVENT DATE: 20190501
